FAERS Safety Report 6747021-1 (Version None)
Quarter: 2010Q2

REPORT INFORMATION
  Report Type: 
  Country: None (occurrence: None)
  Receive Date: 20100528
  Receipt Date: 20100518
  Transmission Date: 20101027
  Serious: Yes (Other)
  Sender: FDA-Public Use
  Company Number: PHHY2010US27588

PATIENT
  Sex: Female
  Weight: 61.859 kg

DRUGS (13)
  1. RECLAST [Suspect]
     Indication: OSTEOPOROSIS
     Dosage: 5 MG, YEARLY
     Route: 042
     Dates: start: 20100420
  2. ASPIRIN [Concomitant]
     Dosage: 81 MG, DAILY
     Route: 048
  3. CELEXA [Concomitant]
     Dosage: 40 MG, DAILY
     Route: 048
  4. BENICAR [Concomitant]
     Dosage: 40 MG, DAILY
     Route: 048
  5. GLUCOVANCE [Concomitant]
     Dosage: 2.5 / 500 MG, TWICE DAILY
     Route: 048
  6. VICODIN HP [Concomitant]
     Dosage: 10/660 MG, THREE TIMES PER DAY
     Route: 048
  7. SIMVASTATIN [Concomitant]
     Dosage: 20 MG, DAILY
     Route: 048
  8. ACTOS [Concomitant]
     Dosage: 45 MG
     Route: 048
  9. HCTZ [Concomitant]
     Dosage: 125 MG
     Route: 048
  10. PRILOSEC [Concomitant]
     Dosage: 20 MG, BID
     Route: 048
  11. M.V.I. [Concomitant]
     Route: 048
  12. METOPROLOL TARTRATE [Concomitant]
     Dosage: 25 MG, DAILY
     Route: 048
  13. ELOCON [Concomitant]
     Dosage: THIN FILM TO AFFECTED AREA TOPICALLY, ONCCE DAILY
     Route: 061

REACTIONS (5)
  - BONE PAIN [None]
  - OEDEMA PERIPHERAL [None]
  - PAIN [None]
  - PAIN IN JAW [None]
  - SWELLING FACE [None]
